FAERS Safety Report 10501054 (Version 1)
Quarter: 2014Q4

REPORT INFORMATION
  Report Type: Spontaneous
  Country: US (occurrence: None)
  Receive Date: 20141006
  Receipt Date: 20141006
  Transmission Date: 20150528
  Serious: Yes (Other)
  Sender: FDA-Public Use
  Company Number: None

PATIENT
  Age: 65 Year
  Sex: Male
  Weight: 100 kg

DRUGS (5)
  1. LOSARTAN [Concomitant]
     Active Substance: LOSARTAN
  2. PREACID [Concomitant]
  3. ASA [Concomitant]
     Active Substance: ASPIRIN
  4. AMLODIPINE [Suspect]
     Active Substance: AMLODIPINE BESYLATE
     Indication: HYPERTENSION
     Dosage: 5 MG ONE DAILY ORAL
     Route: 048
     Dates: start: 20140815, end: 20140917
  5. LIPITOR [Concomitant]
     Active Substance: ATORVASTATIN CALCIUM

REACTIONS (5)
  - Rhonchi [None]
  - Eosinophil count increased [None]
  - Wheezing [None]
  - Sputum increased [None]
  - Dyspnoea [None]

NARRATIVE: CASE EVENT DATE: 20140901
